FAERS Safety Report 5353522-3 (Version None)
Quarter: 2007Q2

REPORT INFORMATION
  Report Type: 
  Country: None (occurrence: None)
  Receive Date: 20070608
  Receipt Date: 20070608
  Transmission Date: 20071010
  Serious: Yes (Death)
  Sender: FDA-Public Use
  Company Number: None

PATIENT
  Age: 67 Year
  Sex: Male
  Weight: 106.1417 kg

DRUGS (2)
  1. MYLOTARG [Suspect]
     Indication: LEUKAEMIA RECURRENT
     Dosage: 20MG EA. DOSE -14-DAYS APART-  Q14 DAYS IV
     Route: 042
     Dates: start: 20060816
  2. MYLOTARG [Suspect]
     Indication: LEUKAEMIA RECURRENT
     Dosage: 20MG EA. DOSE -14-DAYS APART-  Q14 DAYS IV
     Route: 042
     Dates: start: 20060829

REACTIONS (11)
  - ABDOMINAL PAIN [None]
  - ALANINE AMINOTRANSFERASE INCREASED [None]
  - ASCITES [None]
  - ASTHENIA [None]
  - BLOOD BILIRUBIN INCREASED [None]
  - FATIGUE [None]
  - HYPOTENSION [None]
  - NEUTROPENIA [None]
  - PORTAL VEIN THROMBOSIS [None]
  - PYREXIA [None]
  - SEPSIS [None]
